FAERS Safety Report 5267429-3 (Version None)
Quarter: 2007Q1

REPORT INFORMATION
  Report Type: 
  Country: None (occurrence: None)
  Receive Date: 20070313
  Receipt Date: 20070226
  Transmission Date: 20070707
  Serious: Yes (Hospitalization)
  Sender: FDA-Public Use
  Company Number: 2007PV028725

PATIENT
  Age: 58 Year
  Sex: Female

DRUGS (5)
  1. BYETTA [Suspect]
     Indication: DIABETES MELLITUS NON-INSULIN-DEPENDENT
     Dosage: SEE IMAGE
     Dates: start: 20060922, end: 20061022
  2. BYETTA [Suspect]
     Indication: DIABETES MELLITUS NON-INSULIN-DEPENDENT
     Dosage: SEE IMAGE
     Dates: start: 20061022, end: 20070115
  3. METFORMIN HCL [Concomitant]
  4. VYTORIN [Concomitant]
  5. ZETIA [Concomitant]

REACTIONS (3)
  - DIVERTICULITIS [None]
  - ESCHERICHIA BACTERAEMIA [None]
  - WEIGHT DECREASED [None]
